FAERS Safety Report 12675623 (Version 1)
Quarter: 2016Q3

REPORT INFORMATION
  Report Type: Spontaneous
  Country: US (occurrence: None)
  Receive Date: 20160822
  Receipt Date: 20160822
  Transmission Date: 20161109
  Serious: No
  Sender: FDA-Public Use
  Company Number: None

PATIENT
  Age: 52 Year
  Sex: Female
  Weight: 63.5 kg

DRUGS (5)
  1. PROGESTERONE. [Concomitant]
     Active Substance: PROGESTERONE
  2. BUPROPRION, 300 MG ZYDUS [Suspect]
     Active Substance: BUPROPION
     Indication: DEPRESSION
     Dosage: 30 TABLET(S) IN THE MORNING TAKEN BY MOUTH
     Route: 048
  3. ESTROGEN [Concomitant]
     Active Substance: ESTRONE\SUS SCROFA OVARY
  4. VITAMIN D [Concomitant]
     Active Substance: CHOLECALCIFEROL
  5. FLINTSTONE MULTI-VITAMIN [Concomitant]

REACTIONS (6)
  - Crying [None]
  - Impaired work ability [None]
  - Product substitution issue [None]
  - Drug ineffective [None]
  - Headache [None]
  - Depression [None]

NARRATIVE: CASE EVENT DATE: 20160806
